FAERS Safety Report 15432430 (Version 2)
Quarter: 2018Q4

REPORT INFORMATION
  Report Type: Spontaneous
  Country: US (occurrence: US)
  Receive Date: 20180926
  Receipt Date: 20181026
  Transmission Date: 20190204
  Serious: Yes (Other)
  Sender: FDA-Public Use
  Company Number: PHEH2018US040081

PATIENT
  Age: 58 Year
  Sex: Male

DRUGS (1)
  1. TRAVATAN Z [Suspect]
     Active Substance: TRAVOPROST
     Indication: OPEN ANGLE GLAUCOMA
     Dosage: UNK UNK, QHS
     Route: 047
     Dates: start: 20170926, end: 20180918

REACTIONS (3)
  - Corneal opacity [Unknown]
  - Punctate keratitis [Unknown]
  - Vital dye staining cornea present [Not Recovered/Not Resolved]

NARRATIVE: CASE EVENT DATE: 20180605
